FAERS Safety Report 24938674 (Version 1)
Quarter: 2025Q1

REPORT INFORMATION
  Report Type: Spontaneous
  Country: US (occurrence: None)
  Receive Date: 20250206
  Receipt Date: 20250206
  Transmission Date: 20250408
  Serious: Yes (Other)
  Sender: FDA-CTU
  Company Number: None

PATIENT
  Age: 63 Year
  Weight: 90.9 kg

DRUGS (1)
  1. DUPIXENT [Suspect]
     Active Substance: DUPILUMAB
     Indication: Injection

REACTIONS (7)
  - Haemoglobin decreased [None]
  - Oral contusion [None]
  - Joint swelling [None]
  - Peripheral swelling [None]
  - Faeces discoloured [None]
  - Melaena [None]
  - Haematochezia [None]

NARRATIVE: CASE EVENT DATE: 20250203
